FAERS Safety Report 9233262 (Version 1)
Quarter: 2013Q2

REPORT INFORMATION
  Report Type: Spontaneous
  Country: US (occurrence: US)
  Receive Date: 20130416
  Receipt Date: 20130416
  Transmission Date: 20140414
  Serious: No
  Sender: FDA-Public Use
  Company Number: US-BANPHARM-20130688

PATIENT
  Age: 57 Year
  Sex: Female
  Weight: 72.12 kg

DRUGS (4)
  1. ALEVE LIQUID GELS 220MG [Suspect]
     Indication: PAIN
     Dosage: UNK, Q6-8H,
     Route: 048
     Dates: start: 20120306
  2. METFORMIN [Concomitant]
  3. VICTOZA [Concomitant]
  4. PRAVASTATIN [Concomitant]

REACTIONS (2)
  - Drug ineffective [Unknown]
  - Insomnia [Recovered/Resolved]
